FAERS Safety Report 13828865 (Version 2)
Quarter: 2017Q3

REPORT INFORMATION
  Report Type: Spontaneous
  Country: US (occurrence: US)
  Receive Date: 20170803
  Receipt Date: 20170904
  Transmission Date: 20171127
  Serious: Yes (Other)
  Sender: FDA-Public Use
  Company Number: US-WEST-WARD PHARMACEUTICALS CORP.-US-H14001-17-02702

PATIENT
  Sex: Female

DRUGS (4)
  1. INFUMORPH [Suspect]
     Active Substance: MORPHINE SULFATE
     Indication: CERVICAL RADICULOPATHY
  2. INFUMORPH [Suspect]
     Active Substance: MORPHINE SULFATE
     Indication: DRUG TOLERANCE
  3. INFUMORPH [Suspect]
     Active Substance: MORPHINE SULFATE
     Indication: LUMBAR RADICULOPATHY
     Route: 037
     Dates: start: 20170707, end: 20170713
  4. INFUMORPH [Suspect]
     Active Substance: MORPHINE SULFATE
     Indication: ARTHROPATHY

REACTIONS (3)
  - Large intestine perforation [Unknown]
  - Somnolence [Unknown]
  - Mental disorder [Unknown]
